FAERS Safety Report 7000230-9 (Version None)
Quarter: 2010Q3

REPORT INFORMATION
  Report Type: 
  Country: None (occurrence: None)
  Receive Date: 20100920
  Receipt Date: 20080212
  Transmission Date: 20110219
  Serious: Yes (Other)
  Sender: FDA-Public Use
  Company Number: US-ASTRAZENECA-2007UW12516

PATIENT
  Age: 13436 Day
  Sex: Male
  Weight: 106.6 kg

DRUGS (17)
  1. SEROQUEL [Suspect]
     Indication: BIPOLAR DISORDER
     Route: 048
     Dates: start: 20040701
  2. SEROQUEL [Suspect]
     Dosage: STRENGTH: 25 MG AND 800 MG
     Route: 048
     Dates: start: 20051227
  3. DEPAKOTE [Concomitant]
     Dosage: THREE TABLETS A DAY, 1500 MG
     Dates: start: 20041013
  4. TIZANIDINE HCL [Concomitant]
     Dates: start: 20041111
  5. CARBAMAZEPINE [Concomitant]
     Dates: start: 20041111
  6. AMBIEN [Concomitant]
     Dosage: 5 MG - 10 MG
     Dates: start: 20050106
  7. CYCLOBENZAPRINE [Concomitant]
     Dates: start: 20050629
  8. LEXAPRO [Concomitant]
     Dosage: STRENGTH: 10 MG AND 20 MG
     Dates: start: 20051227
  9. EFFEXOR XR [Concomitant]
     Dates: start: 20060127
  10. CLONAZEPAM [Concomitant]
     Dosage: 1/2 TO 1 TABLET
     Dates: start: 20060309
  11. LAMICTAL [Concomitant]
     Dates: start: 20060323
  12. TOPROL-XL [Concomitant]
     Dates: start: 20060413
  13. PRAVACHOL [Concomitant]
     Dates: start: 20060413
  14. ABILIFY [Concomitant]
     Dates: start: 20060413
  15. ALTACE [Concomitant]
     Dates: start: 20060413
  16. LORTAB [Concomitant]
     Dates: start: 20061227
  17. PHENERGAN [Concomitant]
     Dates: start: 20060827

REACTIONS (1)
  - PANCREATITIS ACUTE [None]
